FAERS Safety Report 15469745 (Version 1)
Quarter: 2018Q4

REPORT INFORMATION
  Report Type: Spontaneous
  Country: JP (occurrence: JP)
  Receive Date: 20181005
  Receipt Date: 20181005
  Transmission Date: 20190205
  Serious: Yes (Other)
  Sender: FDA-Public Use
  Company Number: JP-GILEAD-2018-0366178

PATIENT
  Age: 68 Year
  Sex: Male

DRUGS (4)
  1. INTERFERON ALFA NOS [Concomitant]
     Active Substance: INTERFERON ALFA-2A OR INTERFERON ALFA-2B
  2. LAMIVUDINE. [Concomitant]
     Active Substance: LAMIVUDINE
  3. ZEFIX [Suspect]
     Active Substance: LAMIVUDINE
     Indication: HEPATITIS B
     Dosage: 100 MG, 1D
     Route: 048
  4. HEPSERA [Suspect]
     Active Substance: ADEFOVIR DIPIVOXIL
     Indication: HEPATITIS B
     Dosage: 10 MG, 1D
     Route: 048

REACTIONS (7)
  - Fanconi syndrome acquired [Unknown]
  - Hepatocellular carcinoma [Unknown]
  - Foot fracture [Unknown]
  - Osteomalacia [Unknown]
  - Renal tubular dysfunction [Unknown]
  - Osteoporosis [Unknown]
  - Diabetic nephropathy [Unknown]
